FAERS Safety Report 16442273 (Version 2)
Quarter: 2020Q2

REPORT INFORMATION
  Report Type: Report from Study
  Country: None (occurrence: US)
  Receive Date: 20190617
  Receipt Date: 20200604
  Transmission Date: 20200713
  Serious: No
  Sender: FDA-Public Use
  Company Number: US-US WORLDMEDS, LLC-USW201903-000474

PATIENT
  Age: 74 Year
  Sex: Male

DRUGS (14)
  1. CLONIDINE. [Concomitant]
     Active Substance: CLONIDINE
  2. OMEPRAZOLE. [Concomitant]
     Active Substance: OMEPRAZOLE
  3. CLONAZEPAM. [Concomitant]
     Active Substance: CLONAZEPAM
  4. ZOLOFT [Concomitant]
     Active Substance: SERTRALINE HYDROCHLORIDE
  5. FLUTICASONE. [Concomitant]
     Active Substance: FLUTICASONE
  6. APOKYN [Suspect]
     Active Substance: APOMORPHINE HYDROCHLORIDE
     Route: 058
     Dates: start: 20171110, end: 20190315
  7. COLACE [Concomitant]
     Active Substance: DOCUSATE SODIUM
  8. SINEMET [Concomitant]
     Active Substance: CARBIDOPA\LEVODOPA
  9. APOKYN [Suspect]
     Active Substance: APOMORPHINE HYDROCHLORIDE
     Route: 058
     Dates: start: 20171110
  10. ASPIRIN. [Concomitant]
     Active Substance: ASPIRIN
  11. APOKYN [Suspect]
     Active Substance: APOMORPHINE HYDROCHLORIDE
     Indication: PARKINSON^S DISEASE
     Route: 058
     Dates: start: 20171011
  12. GABAPENTIN. [Concomitant]
     Active Substance: GABAPENTIN
  13. NEUPRO [Concomitant]
     Active Substance: ROTIGOTINE
  14. BENZONATATE. [Concomitant]
     Active Substance: BENZONATATE

REACTIONS (3)
  - Blood pressure fluctuation [Recovered/Resolved]
  - Device use issue [Unknown]
  - Hypotension [Recovered/Resolved]

NARRATIVE: CASE EVENT DATE: 2019
